FAERS Safety Report 17954583 (Version 1)
Quarter: 2020Q2

REPORT INFORMATION
  Report Type: Report from Study
  Country: US (occurrence: US)
  Receive Date: 20200629
  Receipt Date: 20200629
  Transmission Date: 20200714
  Serious: Yes (Hospitalization)
  Sender: FDA-Public Use
  Company Number: US-BIOGEN-2020BI00889844

PATIENT
  Age: 50 Year
  Sex: Male

DRUGS (1)
  1. TECFIDERA [Suspect]
     Active Substance: DIMETHYL FUMARATE
     Indication: MULTIPLE SCLEROSIS
     Route: 065
     Dates: end: 201910

REACTIONS (8)
  - Alanine aminotransferase increased [Unknown]
  - Confusional state [Unknown]
  - Muscular weakness [Unknown]
  - Blood glucose increased [Unknown]
  - Blood pressure increased [Unknown]
  - Drug screen positive [Unknown]
  - Fall [Unknown]
  - Gait disturbance [Unknown]

NARRATIVE: CASE EVENT DATE: 20170822
